FAERS Safety Report 6297492-2 (Version None)
Quarter: 2009Q3

REPORT INFORMATION
  Report Type: 
  Country: None (occurrence: None)
  Receive Date: 20090804
  Receipt Date: 20090804
  Transmission Date: 20100115
  Serious: Yes (Hospitalization)
  Sender: FDA-Public Use
  Company Number: None

PATIENT
  Age: 82 Year
  Sex: Male

DRUGS (2)
  1. CLOPIDOGREL [Suspect]
     Indication: MYOCARDIAL INFARCTION
     Dosage: 75 MG EVERY DAY PO
     Route: 048
     Dates: start: 20090401, end: 20090724
  2. ASPIRIN [Suspect]
     Indication: MYOCARDIAL INFARCTION
     Dosage: 325 MG EVERY DAY PO
     Route: 048
     Dates: start: 20090401, end: 20090724

REACTIONS (1)
  - GASTRIC HAEMORRHAGE [None]
